FAERS Safety Report 4354582-9 (Version None)
Quarter: 2004Q2

REPORT INFORMATION
  Report Type: 
  Country: None (occurrence: None)
  Receive Date: 20040506
  Receipt Date: 20040506
  Transmission Date: 20050107
  Serious: No
  Sender: FDA-Public Use
  Company Number: None

PATIENT
  Age: 21 Year
  Sex: Female
  Weight: 108.8633 kg

DRUGS (1)
  1. ZOLOFT [Suspect]
     Indication: PANIC DISORDER
     Dosage: 1 PILL 1 TIME DAI ORAL
     Route: 048

REACTIONS (11)
  - ACNE [None]
  - ALOPECIA [None]
  - AMNESIA [None]
  - ARRHYTHMIA [None]
  - GASTRIC DISORDER [None]
  - HYPOAESTHESIA [None]
  - MIGRAINE [None]
  - TIC [None]
  - TINNITUS [None]
  - VISUAL DISTURBANCE [None]
  - WEIGHT INCREASED [None]
